FAERS Safety Report 5110225-8 (Version None)
Quarter: 2006Q3

REPORT INFORMATION
  Report Type: 
  Country: None (occurrence: None)
  Receive Date: 20060921
  Receipt Date: 20060906
  Transmission Date: 20061208
  Serious: Yes (Death, Hospitalization, Disabling, Other)
  Sender: FDA-Public Use
  Company Number: JP-PURDUE-MAG_2006_0000485

PATIENT
  Age: 69 Year
  Sex: Female

DRUGS (8)
  1. MORPHINE SULFATE [Suspect]
     Indication: CANCER PAIN
     Dosage: 20 MG, DAILY
     Dates: start: 20030801, end: 20040401
  2. MORPHINE SULFATE [Suspect]
     Dosage: 180 MG, DAILY
     Dates: start: 20040401, end: 20040401
  3. MORPHINE SULFATE [Suspect]
     Dosage: 360 (AM) + 180 (PM)
     Dates: start: 20040401, end: 20040601
  4. MORPHINE SULFATE [Suspect]
     Dosage: 180 MG, DAILY
     Dates: start: 20041201, end: 20050501
  5. MORPHINE SULFATE [Suspect]
     Dosage: 240MG (AM) + 180 MG (PM)
     Dates: start: 20050501
  6. MORPHINE [Concomitant]
     Indication: PAIN
     Dosage: 150 MG, DAILY
     Route: 041
  7. FENTANYL [Concomitant]
     Indication: PAIN
     Dosage: 7.5 MG, DAILY
     Route: 061
  8. ACEMETACIN [Concomitant]
     Indication: CANCER PAIN
     Dates: start: 20030401

REACTIONS (17)
  - ABDOMINAL DISCOMFORT [None]
  - BLISTER [None]
  - DEATH [None]
  - DECUBITUS ULCER [None]
  - DEPRESSED LEVEL OF CONSCIOUSNESS [None]
  - HYDRONEPHROSIS [None]
  - HYPOAESTHESIA [None]
  - INTESTINAL OBSTRUCTION [None]
  - MALIGNANT NEOPLASM PROGRESSION [None]
  - MALNUTRITION [None]
  - OEDEMA PERIPHERAL [None]
  - ORAL INTAKE REDUCED [None]
  - OVERDOSE [None]
  - PAIN [None]
  - PAINFUL DEFAECATION [None]
  - URINARY TRACT INFECTION [None]
  - VOMITING [None]
